FAERS Safety Report 8486332-9 (Version None)
Quarter: 2012Q3

REPORT INFORMATION
  Report Type: 
  Country: None (occurrence: None)
  Receive Date: 20120703
  Receipt Date: 20120627
  Transmission Date: 20120928
  Serious: Yes (Disabling, Other)
  Sender: FDA-Public Use
  Company Number: US-GLAXOSMITHKLINE-A0977337A

PATIENT
  Age: 60 Year
  Sex: Male

DRUGS (7)
  1. SYMBICORT [Concomitant]
  2. SPIRIVA [Concomitant]
  3. THEOPHYLLINE [Concomitant]
  4. ANTIBIOTICS [Concomitant]
  5. VENTOLIN [Suspect]
     Indication: PRODUCT USED FOR UNKNOWN INDICATION
     Dosage: 2PUFF SIX TIMES PER DAY
     Route: 055
     Dates: start: 20120301
  6. BROVANA [Concomitant]
  7. SIMVASTATIN [Concomitant]

REACTIONS (2)
  - RESPIRATORY TRACT CONGESTION [None]
  - PRODUCT QUALITY ISSUE [None]
